FAERS Safety Report 22018483 (Version 1)
Quarter: 2023Q1

REPORT INFORMATION
  Report Type: Spontaneous
  Country: CN (occurrence: CN)
  Receive Date: 20230222
  Receipt Date: 20230222
  Transmission Date: 20230418
  Serious: Yes (Hospitalization)
  Sender: FDA-Public Use
  Company Number: CN-SLATE RUN PHARMACEUTICALS-23CN001507

PATIENT

DRUGS (1)
  1. ESOMEPRAZOLE SODIUM [Suspect]
     Active Substance: ESOMEPRAZOLE SODIUM
     Indication: Gastritis
     Dosage: 40 MILLIGRAM, QD

REACTIONS (1)
  - Insulin autoimmune syndrome [Recovering/Resolving]

NARRATIVE: CASE EVENT DATE: 20210501
